FAERS Safety Report 5106499-X (Version None)
Quarter: 2006Q3

REPORT INFORMATION
  Report Type: 
  Country: None (occurrence: None)
  Receive Date: 20060918
  Receipt Date: 20060906
  Transmission Date: 20061208
  Serious: Yes (Other)
  Sender: FDA-Public Use
  Company Number: PHEH2006US11454

PATIENT
  Age: 61 Year
  Sex: Male
  Weight: 148.75 kg

DRUGS (15)
  1. ZOMETA [Suspect]
     Indication: MULTIPLE MYELOMA
     Dosage: 4 MG MONTHLY
     Dates: start: 20040517, end: 20051110
  2. THALIDOMIDE [Concomitant]
  3. LORTAB [Concomitant]
     Dosage: 7.5 MG, UNK
  4. DECADRON [Concomitant]
  5. ARANESP [Concomitant]
     Dosage: 500 MEQ, UNK
  6. VERAPAMIL [Concomitant]
     Dosage: 240 MG, UNK
  7. MIRALAX [Concomitant]
  8. PNEUMOVAX 23 [Concomitant]
     Indication: PROPHYLAXIS
  9. COUMADIN [Concomitant]
     Dosage: 10 MG, QD
  10. PRILOSEC [Concomitant]
  11. TEMAZEPAM [Concomitant]
     Dosage: 30 MG, UNK
  12. NEURONTIN [Concomitant]
  13. MS CONTIN [Concomitant]
     Dosage: 30 MG, BID
  14. PEN-VEE K [Concomitant]
  15. MSIR [Concomitant]
     Dosage: 15 MG, Q3H

REACTIONS (10)
  - BONE LESION [None]
  - FISTULA [None]
  - LESION EXCISION [None]
  - LYMPHADENOPATHY [None]
  - OSTEONECROSIS [None]
  - PAIN [None]
  - RASH PUSTULAR [None]
  - SWELLING [None]
  - TOOTH FRACTURE [None]
  - WOUND DEBRIDEMENT [None]
